FAERS Safety Report 8375941-3 (Version None)
Quarter: 2012Q2

REPORT INFORMATION
  Report Type: 
  Country: None (occurrence: None)
  Receive Date: 20120522
  Receipt Date: 20120510
  Transmission Date: 20120825
  Serious: Yes (Life-Threatening, Hospitalization)
  Sender: FDA-Public Use
  Company Number: DE-ASTELLAS-2012US004555

PATIENT
  Sex: Male
  Weight: 101 kg

DRUGS (3)
  1. DIPYRONE TAB [Concomitant]
     Indication: PYREXIA
     Dosage: UNK
     Route: 065
  2. AMBISOME [Suspect]
     Indication: FUNGAL INFECTION
     Dosage: 100 MG, UNKNOWN/D
     Route: 042
     Dates: start: 20120322, end: 20120322
  3. COLISTIN SULFATE [Concomitant]
     Indication: GASTROINTESTINAL DISORDER
     Dosage: UNK
     Route: 065

REACTIONS (3)
  - OXYGEN SATURATION DECREASED [None]
  - RESPIRATORY FAILURE [None]
  - DYSPNOEA [None]
